FAERS Safety Report 11855228 (Version 1)
Quarter: 2015Q4

REPORT INFORMATION
  Report Type: Spontaneous
  Country: IT (occurrence: IT)
  Receive Date: 20151221
  Receipt Date: 20151221
  Transmission Date: 20160305
  Serious: Yes (Other)
  Sender: FDA-Public Use
  Company Number: IT-ACTAVIS-2015-16363

PATIENT
  Age: 62 Year
  Sex: Female

DRUGS (3)
  1. NON-PEGYLATED LIPOSOMAL DOXORUBICIN HYDROCHL. [Suspect]
     Active Substance: DOXORUBICIN HYDROCHLORIDE
     Indication: BREAST CANCER METASTATIC
     Dosage: 50 MG/M2, CYCLICAL
     Route: 065
     Dates: start: 2011
  2. EPIRUBICIN (UNKNOWN) [Suspect]
     Active Substance: EPIRUBICIN
     Indication: BREAST CANCER METASTATIC
     Dosage: 75 MG/M2, CYCLICAL
     Route: 065
  3. PEGYLATED LIPOSOMAL DOXORUBICIN HYDROCHLORIDE [Suspect]
     Active Substance: DOXORUBICIN HYDROCHLORIDE
     Indication: BREAST CANCER METASTATIC
     Dosage: 30 MG/M2, CYCLICAL
     Route: 065
     Dates: start: 2011

REACTIONS (2)
  - Left ventricular dysfunction [Recovered/Resolved]
  - Right ventricular dysfunction [Recovered/Resolved]
